FAERS Safety Report 9795579 (Version 1)
Quarter: 2014Q1

REPORT INFORMATION
  Report Type: Spontaneous
  Country: US (occurrence: US)
  Receive Date: 20140103
  Receipt Date: 20140103
  Transmission Date: 20141002
  Serious: Yes (Death)
  Sender: FDA-Public Use
  Company Number: US-UCBSA-107698

PATIENT
  Age: 35 Year
  Sex: Male

DRUGS (4)
  1. ALPRAZOLAM [Suspect]
     Dosage: ROUTE: INGESTION
  2. QUETIAPINE [Suspect]
     Dosage: ROUTE: INGESTION
  3. OXYCODONE [Suspect]
     Dosage: ROUTE: INGESTION
  4. ACETAMINOPHEN [Suspect]
     Dosage: ROUTE: INGESTION

REACTIONS (1)
  - Adverse drug reaction [Fatal]
